FAERS Safety Report 9687028 (Version 2)
Quarter: 2014Q2

REPORT INFORMATION
  Report Type: Report from Study
  Country: JP (occurrence: JP)
  Receive Date: 20131113
  Receipt Date: 20140505
  Transmission Date: 20141212
  Serious: Yes (Hospitalization, Other)
  Sender: FDA-Public Use
  Company Number: PHHY2013JP127084

PATIENT
  Sex: Male

DRUGS (46)
  1. LEPONEX / CLOZARIL [Suspect]
     Indication: SCHIZOPHRENIA, PARANOID TYPE
     Dosage: 12.5 MG, UNK
     Route: 048
     Dates: start: 20111207
  2. LEPONEX / CLOZARIL [Suspect]
     Dosage: 25 MG, UNK
     Route: 048
     Dates: start: 20111208
  3. LEPONEX / CLOZARIL [Suspect]
     Dosage: 50 MG, UNK
     Route: 048
     Dates: start: 20111211
  4. LEPONEX / CLOZARIL [Suspect]
     Dosage: 75 MG, UNK
     Route: 048
     Dates: start: 20111214
  5. LEPONEX / CLOZARIL [Suspect]
     Dosage: 100 MG, UNK
     Route: 048
     Dates: start: 20111216
  6. LEPONEX / CLOZARIL [Suspect]
     Dosage: 125 MG, UNK
     Route: 048
     Dates: start: 20111218
  7. LEPONEX / CLOZARIL [Suspect]
     Dosage: 150 MG, UNK
     Route: 048
     Dates: start: 20111221
  8. LEPONEX / CLOZARIL [Suspect]
     Dosage: 175 MG, UNK
     Route: 048
     Dates: start: 20111224
  9. LEPONEX / CLOZARIL [Suspect]
     Dosage: 200 MG, UNK
     Route: 048
     Dates: start: 20111227
  10. LEPONEX / CLOZARIL [Suspect]
     Dosage: 300 MG, UNK
     Route: 048
     Dates: start: 20111230
  11. LEPONEX / CLOZARIL [Suspect]
     Dosage: 400 MG, UNK
     Route: 048
     Dates: start: 20120103
  12. LEPONEX / CLOZARIL [Suspect]
     Dosage: 350 MG, UNK
     Route: 048
     Dates: start: 20120208
  13. LEPONEX / CLOZARIL [Suspect]
     Dosage: 300 MG, UNK
     Route: 048
     Dates: start: 20120212
  14. LEPONEX / CLOZARIL [Suspect]
     Dosage: 350 MG, UNK
     Route: 048
     Dates: start: 20120324
  15. LEPONEX / CLOZARIL [Suspect]
     Dosage: 300 MG, UNK
     Route: 048
     Dates: start: 20120418, end: 20120619
  16. LEPONEX / CLOZARIL [Suspect]
     Dosage: 350 MG, UNK
     Dates: start: 20120620, end: 20120731
  17. LEPONEX / CLOZARIL [Suspect]
     Dosage: 375 MG, UNK
     Dates: start: 20120801, end: 20120814
  18. LEPONEX / CLOZARIL [Suspect]
     Dosage: 400 MG, UNK
     Dates: start: 20120815, end: 20121204
  19. LEPONEX / CLOZARIL [Suspect]
     Dosage: 425 MG, UNK
     Dates: start: 20121205
  20. DIOVAN [Concomitant]
     Dosage: 80 MG, UNK
     Route: 048
  21. DIOVAN [Concomitant]
     Dosage: 160 MG, UNK
     Route: 048
  22. DIOVAN [Concomitant]
     Dosage: 120 MG, UNK
     Route: 048
  23. RISPERIDONE [Concomitant]
     Dosage: 12 MG, UNK
     Route: 048
     Dates: end: 20111229
  24. OLANZAPINE [Concomitant]
     Dosage: 20 MG, UNK
     Route: 048
  25. OLANZAPINE [Concomitant]
     Dosage: 10 MG, UNK
     Route: 048
     Dates: end: 20111229
  26. TASMOLIN [Concomitant]
     Indication: SCHIZOPHRENIA, PARANOID TYPE
     Dosage: 6 MG, UNK
     Route: 048
  27. TASMOLIN [Concomitant]
     Dosage: 4 MG, UNK
     Route: 048
  28. TASMOLIN [Concomitant]
     Dosage: 2 MG, UNK
     Route: 048
     Dates: end: 20120419
  29. LIMAS [Concomitant]
     Indication: SCHIZOPHRENIA, PARANOID TYPE
     Dosage: 400 MG, UNK
     Route: 048
  30. LIMAS [Concomitant]
     Dosage: 600 MG, UNK
     Route: 048
  31. LIMAS [Concomitant]
     Dosage: 400 MG, UNK
     Route: 048
  32. LIMAS [Concomitant]
     Dosage: 200 MG, UNK
     Route: 048
     Dates: end: 20120405
  33. RIVOTRIL [Concomitant]
     Indication: SCHIZOPHRENIA, PARANOID TYPE
     Dosage: 2 MG, UNK
     Route: 048
  34. RIVOTRIL [Concomitant]
     Dosage: 1.5 MG, UNK
     Route: 048
  35. RIVOTRIL [Concomitant]
     Dosage: 1 MG, UNK
     Route: 048
  36. ARTANE [Concomitant]
     Indication: SCHIZOPHRENIA, PARANOID TYPE
     Dosage: 10 MG, UNK
     Route: 048
  37. ARTANE [Concomitant]
     Dosage: 6 MG, UNK
     Route: 048
     Dates: end: 20120223
  38. ADALAT A.R. [Concomitant]
     Dosage: 20 MG, UNK
     Route: 048
  39. ADALAT A.R. [Concomitant]
     Dosage: 40 MG, UNK
     Route: 048
  40. SODIUM VALPROATE [Concomitant]
     Indication: SCHIZOPHRENIA, PARANOID TYPE
     Dosage: 400 MG, UNK
     Route: 048
     Dates: start: 20121223
  41. LEUCON [Concomitant]
     Indication: SCHIZOPHRENIA, PARANOID TYPE
     Dosage: 20 MG, UNK
     Route: 048
     Dates: start: 20120406
  42. LEUCON [Concomitant]
     Dosage: 40 MG, UNK
     Route: 048
  43. AMLODIPINE [Concomitant]
     Indication: HYPERTENSION
     Dosage: 5 MG, UNK
     Route: 048
     Dates: start: 20120829
  44. ALDACTONE [Concomitant]
     Indication: HYPERTENSION
     Dosage: 50 MG, UNK
     Route: 048
     Dates: start: 20120817, end: 20121018
  45. WYPAX [Concomitant]
     Indication: SCHIZOPHRENIA, PARANOID TYPE
     Dosage: 1 MG, UNK
     Route: 048
     Dates: start: 20120921
  46. WYPAX [Concomitant]
     Dosage: 1.5 MG, UNK
     Route: 048

REACTIONS (7)
  - Fall [Unknown]
  - Femoral neck fracture [Recovering/Resolving]
  - Haemoglobin decreased [Not Recovered/Not Resolved]
  - Blood pressure increased [Not Recovered/Not Resolved]
  - Body temperature decreased [Recovered/Resolved]
  - Red blood cell count decreased [Not Recovered/Not Resolved]
  - Haematocrit decreased [Not Recovered/Not Resolved]
